FAERS Safety Report 18799433 (Version 2)
Quarter: 2021Q1

REPORT INFORMATION
  Report Type: Spontaneous
  Country: US (occurrence: US)
  Receive Date: 20210128
  Receipt Date: 20210205
  Transmission Date: 20210419
  Serious: Yes (Other)
  Sender: FDA-Public Use
  Company Number: US-MYLANLABS-2021M1004929

PATIENT
  Age: 50 Year
  Sex: Male

DRUGS (7)
  1. TRABECTEDIN [Suspect]
     Active Substance: TRABECTEDIN
     Indication: LIPOSARCOMA RECURRENT
     Dosage: UNK UNK, CYCLE
     Route: 065
  2. DENOSUMAB [Concomitant]
     Active Substance: DENOSUMAB
     Indication: LIPOSARCOMA RECURRENT
     Dosage: 120 MILLIGRAM, MONTHLY
     Route: 058
  3. PAZOPANIB [Suspect]
     Active Substance: PAZOPANIB
     Indication: LIPOSARCOMA RECURRENT
     Dosage: UNK
     Route: 065
  4. GEMCITABINE. [Suspect]
     Active Substance: GEMCITABINE
     Indication: LIPOSARCOMA RECURRENT
     Dosage: ON DAY 1 AND DAY 8 EVERY...
     Route: 065
  5. ERIBULIN [Suspect]
     Active Substance: ERIBULIN
     Indication: LIPOSARCOMA RECURRENT
     Dosage: UNK
     Route: 065
  6. DOXORUBICIN [Suspect]
     Active Substance: DOXORUBICIN
     Indication: LIPOSARCOMA RECURRENT
     Dosage: 45 MILLIGRAM/SQ. METER, MONTHLY...
     Route: 065
  7. PEMBROLIZUMAB. [Suspect]
     Active Substance: PEMBROLIZUMAB
     Indication: LIPOSARCOMA RECURRENT
     Dosage: UNK
     Route: 065

REACTIONS (4)
  - Renal failure [Recovering/Resolving]
  - Thrombotic microangiopathy [Recovering/Resolving]
  - Chronic kidney disease [Recovering/Resolving]
  - Treatment failure [Unknown]
